FAERS Safety Report 15948759 (Version 1)
Quarter: 2019Q1

REPORT INFORMATION
  Report Type: Spontaneous
  Country: IN (occurrence: IN)
  Receive Date: 20190212
  Receipt Date: 20190212
  Transmission Date: 20190417
  Serious: Yes (Other)
  Sender: FDA-Public Use
  Company Number: IN-ACCORD-102213

PATIENT
  Age: 45 Year
  Sex: Female

DRUGS (5)
  1. ZUCLOPENTHIXOL/ZUCLOPENTHIXOL ACETATE/ZUCLOPENTHIXOL DECANOATE/ZUCLOPENTHIXOL HYDROCHLORIDE [Concomitant]
     Indication: SCHIZOAFFECTIVE DISORDER
     Dosage: 400 MG.
     Route: 030
     Dates: start: 201610
  2. VALPROATE [Concomitant]
     Active Substance: VALPROIC ACID
     Indication: SCHIZOAFFECTIVE DISORDER
     Dates: start: 201605, end: 201610
  3. CLOZAPINE. [Suspect]
     Active Substance: CLOZAPINE
     Indication: SCHIZOAFFECTIVE DISORDER
     Dosage: 450 MG  WAS FURTHER INCREASED TO 650 MG
     Dates: start: 201605, end: 201701
  4. QUETIAPINE/QUETIAPINE FUMARATE [Concomitant]
     Indication: SCHIZOAFFECTIVE DISORDER
     Dates: start: 201603
  5. RISPERIDONE. [Concomitant]
     Active Substance: RISPERIDONE
     Indication: SCHIZOAFFECTIVE DISORDER
     Dates: start: 201603

REACTIONS (1)
  - Hypersexuality [Recovered/Resolved]

NARRATIVE: CASE EVENT DATE: 201701
